FAERS Safety Report 12664995 (Version 4)
Quarter: 2016Q4

REPORT INFORMATION
  Report Type: Spontaneous
  Country: GB (occurrence: GB)
  Receive Date: 20160818
  Receipt Date: 20161006
  Transmission Date: 20170207
  Serious: Yes (Life-Threatening, Hospitalization, Other)
  Sender: FDA-Public Use
  Company Number: GB-MYLANLABS-2016M1033845

PATIENT

DRUGS (7)
  1. BISOPROLOL [Suspect]
     Active Substance: BISOPROLOL
     Indication: PRODUCT USED FOR UNKNOWN INDICATION
     Dosage: UNK
  2. MONOPARIN [Suspect]
     Active Substance: HEPARIN SODIUM
     Indication: PRODUCT USED FOR UNKNOWN INDICATION
     Dosage: 0.2 ML, UNK (5000 IU/0.2ML)
     Route: 058
     Dates: start: 20160512, end: 20160615
  3. APIXABAN [Suspect]
     Active Substance: APIXABAN
     Indication: PRODUCT USED FOR UNKNOWN INDICATION
     Dosage: UNK
  4. DIAZEPAM. [Suspect]
     Active Substance: DIAZEPAM
     Indication: PRODUCT USED FOR UNKNOWN INDICATION
     Dosage: UNK
  5. HEPARIN SODIUM. [Suspect]
     Active Substance: HEPARIN SODIUM
     Indication: PRODUCT USED FOR UNKNOWN INDICATION
     Dosage: 0.2 ML, UNK 5000 IU/0.2ML
     Route: 058
     Dates: start: 20160512, end: 20160615
  6. HEPARIN [Suspect]
     Active Substance: HEPARIN SODIUM
     Indication: PRODUCT USED FOR UNKNOWN INDICATION
     Dosage: UNK
     Dates: start: 20160512
  7. AMIODARONE [Suspect]
     Active Substance: AMIODARONE
     Dosage: UNK

REACTIONS (23)
  - Atrial fibrillation [Unknown]
  - Jaundice [Unknown]
  - Heart rate abnormal [Unknown]
  - Thrombocytopenia [Unknown]
  - Hepatic failure [Unknown]
  - Renal failure [Unknown]
  - Muscle haemorrhage [Unknown]
  - Back pain [Unknown]
  - Poor peripheral circulation [Unknown]
  - Complication associated with device [Unknown]
  - General physical condition abnormal [Unknown]
  - Internal haemorrhage [Recovered/Resolved]
  - Septic shock [Unknown]
  - Malaise [Unknown]
  - Productive cough [Unknown]
  - Asthenia [Unknown]
  - Cardiac failure [Unknown]
  - Discomfort [Not Recovered/Not Resolved]
  - Septic rash [Unknown]
  - Monoplegia [Unknown]
  - Sensory disturbance [Unknown]
  - Insomnia [Unknown]
  - Pyrexia [Unknown]

NARRATIVE: CASE EVENT DATE: 20160512
